FAERS Safety Report 5840127-0 (Version None)
Quarter: 2008Q3

REPORT INFORMATION
  Report Type: 
  Country: None (occurrence: None)
  Receive Date: 20080807
  Receipt Date: 20080807
  Transmission Date: 20090109
  Serious: Yes (Other)
  Sender: FDA-Public Use
  Company Number: None

PATIENT
  Age: 54 Year
  Sex: Male
  Weight: 63.5036 kg

DRUGS (2)
  1. DURAGESIC-75 [Suspect]
     Indication: INTERVERTEBRAL DISC PROTRUSION
     Dosage: 75MCG/HR TOPICALLY EVERY 48 HOURS
     Route: 061
     Dates: start: 20080101
  2. DURAGESIC-75 [Suspect]
     Indication: SPINAL OSTEOARTHRITIS
     Dosage: 75MCG/HR TOPICALLY EVERY 48 HOURS
     Route: 061
     Dates: start: 20080101

REACTIONS (3)
  - APPLICATION SITE PAIN [None]
  - ERYTHEMA [None]
  - PHARMACEUTICAL PRODUCT COMPLAINT [None]
